FAERS Safety Report 8155467-2 (Version None)
Quarter: 2012Q1

REPORT INFORMATION
  Report Type: 
  Country: None (occurrence: None)
  Receive Date: 20120222
  Receipt Date: 20120212
  Transmission Date: 20120608
  Serious: Yes (Hospitalization)
  Sender: FDA-Public Use
  Company Number: IL-ELI_LILLY_AND_COMPANY-IL201202004301

PATIENT
  Sex: Female

DRUGS (14)
  1. LEVOTHYROXINE SODIUM [Concomitant]
  2. IRON [Concomitant]
  3. OXYCONTIN [Concomitant]
     Indication: PAIN
  4. VABEN [Concomitant]
  5. LAXADIN [Concomitant]
  6. CADEX [Concomitant]
     Indication: HYPERTENSION
  7. OMEPRADEX [Concomitant]
  8. DIOVAN [Concomitant]
     Indication: HYPERTENSION
  9. FORTEO [Suspect]
     Indication: OSTEOPOROSIS
     Dosage: 20 UG, QD
     Route: 058
     Dates: start: 20101104
  10. VITACAL                            /01535001/ [Concomitant]
  11. ASPIRIN [Concomitant]
  12. CARDILOC [Concomitant]
  13. VITAMIN D [Concomitant]
  14. SIMVASTATIN [Concomitant]

REACTIONS (1)
  - BLOOD PHOSPHORUS DECREASED [None]
